FAERS Safety Report 8514062-3 (Version None)
Quarter: 2012Q3

REPORT INFORMATION
  Report Type: 
  Country: None (occurrence: None)
  Receive Date: 20120717
  Receipt Date: 20120704
  Transmission Date: 20120928
  Serious: Yes (Hospitalization)
  Sender: FDA-Public Use
  Company Number: JP-009507513-2012SP024420

PATIENT

DRUGS (7)
  1. PEGINTERFERON ALFA-2B [Suspect]
     Indication: HEPATITIS C
     Dosage: 1.5 MICROGRAM PER KILOGRAM, QW
     Route: 058
     Dates: start: 20120301, end: 20120419
  2. REBETOL [Suspect]
     Indication: HEPATITIS C
     Dosage: 600 MG, QD
     Route: 048
     Dates: start: 20120301, end: 20120418
  3. ALLOPURINOL [Concomitant]
     Indication: HYPERURICAEMIA
     Dosage: 100 MG, QD
     Route: 048
     Dates: start: 20120309
  4. [COMPOSITION UNSPECIFIED] [Concomitant]
     Indication: HYPERGLYCAEMIA
     Dosage: 50 MG, QD
     Route: 048
     Dates: start: 20120412
  5. SULPIRIDE [Concomitant]
     Indication: DECREASED APPETITE
     Dosage: 150 MG, QD
     Route: 048
     Dates: start: 20120310, end: 20120322
  6. REBETOL [Suspect]
     Dosage: 200 MG, QD
     Route: 048
     Dates: start: 20120419, end: 20120424
  7. TELAVIC [Suspect]
     Indication: HEPATITIS C
     Dosage: 1500 MG, QD
     Route: 048
     Dates: start: 20120301, end: 20120426

REACTIONS (2)
  - DECREASED APPETITE [None]
  - MALAISE [None]
